FAERS Safety Report 6262990-4 (Version None)
Quarter: 2009Q3

REPORT INFORMATION
  Report Type: 
  Country: None (occurrence: None)
  Receive Date: 20090710
  Receipt Date: 20070503
  Transmission Date: 20100115
  Serious: Yes (Hospitalization, Other)
  Sender: FDA-Public Use
  Company Number: US-ASTRAZENECA-2006UW27335

PATIENT
  Age: 46 Year
  Sex: Female
  Weight: 98.9 kg

DRUGS (59)
  1. SEROQUEL [Suspect]
     Indication: BIPOLAR DISORDER
     Dosage: 25-300 MG
     Route: 048
     Dates: start: 20030429
  2. SEROQUEL [Suspect]
     Indication: SCHIZOPHRENIA
     Dosage: 25-300 MG
     Route: 048
     Dates: start: 20030429
  3. SEROQUEL [Suspect]
     Dosage: 600 MG, 900 MG
     Route: 048
     Dates: start: 20030603, end: 20060414
  4. SEROQUEL [Suspect]
     Dosage: 600 MG, 900 MG
     Route: 048
     Dates: start: 20030603, end: 20060414
  5. ABILIFY [Concomitant]
     Dates: start: 20050101
  6. GEODON [Concomitant]
  7. THORAZINE [Concomitant]
     Dates: start: 20040101
  8. ZYPREXA [Concomitant]
     Dates: start: 20030101
  9. PAXIL [Concomitant]
  10. XANAX [Concomitant]
  11. LEVOXYL [Concomitant]
  12. TYLENOL [Concomitant]
  13. BENTYL [Concomitant]
  14. PHENERGAN [Concomitant]
  15. DARVOCET-N 100 [Concomitant]
  16. PROZAC [Concomitant]
  17. LAMICTAL [Concomitant]
  18. VALIUM [Concomitant]
  19. X-NAPROXEN [Concomitant]
  20. DIFLUCAN [Concomitant]
  21. NOVOLOG [Concomitant]
  22. HUMULIN R [Concomitant]
  23. SYNTHROID [Concomitant]
  24. TRIGLIDE [Concomitant]
  25. LUNESTA [Concomitant]
  26. TRAZODONE HCL [Concomitant]
  27. NEXIUM [Concomitant]
  28. EFFEXOR XR [Concomitant]
  29. HYDROCODONE BITARTRATE [Concomitant]
  30. GEMFIBROZIL [Concomitant]
  31. ZITHROMAX [Concomitant]
  32. TEMAZEPAM [Concomitant]
  33. FLONASE [Concomitant]
  34. CEPHALEXIN [Concomitant]
  35. RISPERDAL [Concomitant]
  36. CYMBALTA [Concomitant]
  37. DEPAKOTE [Concomitant]
  38. DOXEPIN HCL [Concomitant]
  39. CHANTIX [Concomitant]
  40. THIOTHIXENE [Concomitant]
  41. CARBAMAZEPINE [Concomitant]
  42. NABUMETONE [Concomitant]
  43. BENZTROPINE MES [Concomitant]
  44. IBUPROFEN [Concomitant]
  45. PREVACID [Concomitant]
  46. LYRICA [Concomitant]
  47. HYDROMORPHON [Concomitant]
  48. NICODERM [Concomitant]
  49. NITROGLYCERIN [Concomitant]
  50. TRAMADOL [Concomitant]
  51. ERVTHROCIN [Concomitant]
  52. CLINDAMYCIN [Concomitant]
  53. ERY-TAB [Concomitant]
  54. TRIAZOLAM [Concomitant]
  55. FLUOCINONIDE [Concomitant]
  56. KETOROLAC TROMETHAMINE [Concomitant]
  57. Z-PAK [Concomitant]
  58. LOPROX [Concomitant]
  59. METRONIDAZOLE [Concomitant]

REACTIONS (11)
  - ANAEMIA [None]
  - DIABETES MELLITUS [None]
  - DIABETIC KETOACIDOSIS [None]
  - GASTROINTESTINAL INFECTION [None]
  - HYPERLIPIDAEMIA [None]
  - HYPERTENSION [None]
  - HYPOTHYROIDISM [None]
  - MIGRAINE [None]
  - PANCREATITIS [None]
  - URINARY TRACT INFECTION [None]
  - VAGINAL INFECTION [None]
